FAERS Safety Report 11617143 (Version 2)
Quarter: 2015Q4

REPORT INFORMATION
  Report Type: Spontaneous
  Country: DE (occurrence: DE)
  Receive Date: 20151009
  Receipt Date: 20151026
  Transmission Date: 20160304
  Serious: Yes (Other)
  Sender: FDA-Public Use
  Company Number: DE-BAYER-2015-433910

PATIENT
  Age: 32 Year
  Sex: Female

DRUGS (2)
  1. OMEPRAZOL [Concomitant]
     Active Substance: OMEPRAZOLE
     Indication: REFLUX GASTRITIS
     Dosage: 20 MG, QD
     Route: 048
  2. MIRENA [Suspect]
     Active Substance: LEVONORGESTREL
     Dosage: 20 MCG/24HR, CONT
     Route: 015
     Dates: start: 200911, end: 201409

REACTIONS (22)
  - Vulvovaginal dryness [None]
  - Cervix inflammation [None]
  - Abdominal discomfort [None]
  - Folliculitis [Recovering/Resolving]
  - Loss of libido [Recovered/Resolved]
  - Vision blurred [None]
  - Vaginal haemorrhage [None]
  - Migraine [Recovered/Resolved]
  - Neoplasm malignant [None]
  - Amenorrhoea [None]
  - Metrorrhagia [None]
  - Depressed mood [Recovered/Resolved]
  - Dysgeusia [None]
  - Apathy [None]
  - Intraocular pressure increased [None]
  - Feeling abnormal [Recovered/Resolved]
  - Acne [Recovering/Resolving]
  - Depression [None]
  - Weight gain poor [None]
  - Skin disorder [None]
  - Gastrointestinal pain [None]
  - Listless [Recovered/Resolved]

NARRATIVE: CASE EVENT DATE: 2009
